FAERS Safety Report 8956644 (Version 2)
Quarter: 2012Q4

REPORT INFORMATION
  Report Type: 
  Country: SI (occurrence: SI)
  Receive Date: 20121210
  Receipt Date: 20121217
  Transmission Date: 20130627
  Serious: Yes (Death)
  Sender: FDA-Public Use
  Company Number: SI-JNJFOC-20121203029

PATIENT
  Sex: Male

DRUGS (9)
  1. DOXORUBICIN [Suspect]
     Indication: DIFFUSE LARGE B-CELL LYMPHOMA
     Route: 042
  2. DOXORUBICIN [Suspect]
     Indication: DIFFUSE LARGE B-CELL LYMPHOMA
     Route: 065
  3. CYCLOPHOSPHAMIDE [Suspect]
     Indication: DIFFUSE LARGE B-CELL LYMPHOMA
     Route: 065
  4. VINCRISTINE [Suspect]
     Indication: DIFFUSE LARGE B-CELL LYMPHOMA
     Route: 065
  5. RITUXIMAB [Suspect]
     Indication: DIFFUSE LARGE B-CELL LYMPHOMA
     Route: 065
  6. METHOTREXATE [Suspect]
     Indication: LYMPHOMA AIDS RELATED
     Route: 037
  7. CYTARABINE HYDROCHLORIDE [Suspect]
     Indication: LYMPHOMA AIDS RELATED
     Route: 065
  8. PREDNISONE [Suspect]
     Indication: LYMPHOMA AIDS RELATED
     Route: 065
  9. ASPARAGINASE [Suspect]
     Indication: LYMPHOMA AIDS RELATED
     Route: 065

REACTIONS (2)
  - Lymphoma [Fatal]
  - Hepatorenal syndrome [Fatal]
